FAERS Safety Report 4504518-2 (Version None)
Quarter: 2004Q4

REPORT INFORMATION
  Report Type: 
  Country: None (occurrence: None)
  Receive Date: 20041118
  Receipt Date: 20041026
  Transmission Date: 20050328
  Serious: Yes (Death, Other)
  Sender: FDA-Public Use
  Company Number: BE-BRISTOL-MYERS SQUIBB COMPANY-12745691

PATIENT
  Age: 60 Year
  Sex: Female

DRUGS (7)
  1. ATAZANAVIR [Suspect]
     Indication: HIV TEST POSITIVE
     Route: 048
     Dates: start: 20040601, end: 20041009
  2. RITONAVIR [Concomitant]
  3. NEVIRAPINE [Concomitant]
  4. MORPHINE SULFATE [Concomitant]
  5. AMITRIPTYLINE HCL [Concomitant]
  6. GABAPENTIN [Concomitant]
  7. DARBEPOETIN ALFA [Concomitant]

REACTIONS (4)
  - CONDITION AGGRAVATED [None]
  - RENAL FAILURE ACUTE [None]
  - URINARY TRACT INFECTION [None]
  - UTERINE CANCER [None]
